FAERS Safety Report 7906517-7 (Version None)
Quarter: 2011Q4

REPORT INFORMATION
  Report Type: 
  Country: None (occurrence: None)
  Receive Date: 20111110
  Receipt Date: 20111028
  Transmission Date: 20120403
  Serious: Yes (Other)
  Sender: FDA-Public Use
  Company Number: US-ELI_LILLY_AND_COMPANY-US201107004326

PATIENT
  Sex: Female

DRUGS (2)
  1. FORTEO [Suspect]
     Indication: OSTEOPOROSIS
     Dosage: 20 UG, QD
     Route: 065
  2. FORTEO [Suspect]
     Dosage: 20 UG, QD
     Route: 065

REACTIONS (10)
  - VOMITING [None]
  - NAUSEA [None]
  - ABDOMINAL DISTENSION [None]
  - WEIGHT INCREASED [None]
  - MUSCLE SPASMS [None]
  - JOINT SWELLING [None]
  - INJECTION SITE HAEMATOMA [None]
  - BASAL CELL CARCINOMA [None]
  - INSOMNIA [None]
  - ABDOMINAL PAIN UPPER [None]
